FAERS Safety Report 9681736 (Version 2)
Quarter: 2013Q4

REPORT INFORMATION
  Report Type: Spontaneous
  Country: JP (occurrence: JP)
  Receive Date: 20131111
  Receipt Date: 20131204
  Transmission Date: 20140711
  Serious: Yes (Other)
  Sender: FDA-Public Use
  Company Number: JP-GLAXOSMITHKLINE-B0926563A

PATIENT
  Age: 54 Year
  Sex: Female

DRUGS (8)
  1. LAMICTAL [Suspect]
     Indication: BIPOLAR DISORDER
     Dosage: 25MG PER DAY
     Route: 048
     Dates: start: 20130823, end: 20130905
  2. LAMICTAL [Suspect]
     Indication: BIPOLAR DISORDER
     Dosage: 25MG TWICE PER DAY
     Route: 048
     Dates: start: 20130906, end: 20130919
  3. LAMICTAL [Suspect]
     Indication: BIPOLAR DISORDER
     Dosage: 50MG TWICE PER DAY
     Route: 048
     Dates: start: 20130920, end: 20130925
  4. MEDEPOLIN [Concomitant]
     Indication: ANXIETY
     Dosage: 1.2MG THREE TIMES PER DAY
     Route: 048
     Dates: start: 20130528
  5. MAGLAX [Concomitant]
     Indication: CONSTIPATION
     Dosage: 2G THREE TIMES PER DAY
     Route: 048
  6. BENZALIN [Concomitant]
     Indication: INSOMNIA
     Dosage: 10MG PER DAY
     Route: 048
     Dates: start: 20130122
  7. ROHYPNOL [Concomitant]
     Indication: INSOMNIA
     Dosage: 2MG PER DAY
     Route: 048
     Dates: start: 20130611
  8. AMOXAN [Concomitant]
     Indication: BIPOLAR DISORDER
     Dosage: 60MG THREE TIMES PER DAY
     Route: 048
     Dates: start: 20130906

REACTIONS (8)
  - Eczema [Recovering/Resolving]
  - Rash [Unknown]
  - Lip swelling [Unknown]
  - Oropharyngeal pain [Unknown]
  - Stomatitis [Unknown]
  - Upper respiratory tract inflammation [Unknown]
  - Pyrexia [Recovered/Resolved]
  - Papule [Unknown]
